FAERS Safety Report 19505235 (Version 1)
Quarter: 2021Q3

REPORT INFORMATION
  Report Type: Spontaneous
  Country: MY (occurrence: MY)
  Receive Date: 20210707
  Receipt Date: 20210707
  Transmission Date: 20211014
  Serious: Yes (Other)
  Sender: FDA-Public Use
  Company Number: MY-BAXTER-2021BAX018844

PATIENT
  Age: 44 Year
  Sex: Male

DRUGS (1)
  1. HOLOXAN INJ 1GM (30ML VIAL) [Suspect]
     Active Substance: IFOSFAMIDE
     Indication: SEMINOMA
     Dosage: 30 ML VIAL
     Route: 042

REACTIONS (3)
  - Repetitive speech [Recovered/Resolved]
  - Abnormal behaviour [Recovered/Resolved]
  - Confusional state [Recovered/Resolved]
